FAERS Safety Report 7934551-X (Version None)
Quarter: 2011Q4

REPORT INFORMATION
  Report Type: 
  Country: None (occurrence: None)
  Receive Date: 20111122
  Receipt Date: 20111117
  Transmission Date: 20120403
  Serious: Yes (Hospitalization)
  Sender: FDA-Public Use
  Company Number: US-BRISTOL-MYERS SQUIBB COMPANY-16236382

PATIENT
  Age: 16 Year
  Sex: Male

DRUGS (4)
  1. ABILIFY [Suspect]
     Indication: BIPOLAR DISORDER
     Dosage: ABOUT 1 YEAR AGO
  2. ALCOHOL [Suspect]
  3. TRAZODONE HCL [Concomitant]
     Dosage: SPORADICALLY
  4. EFFEXOR [Concomitant]
     Dosage: SPORADICALLY

REACTIONS (1)
  - ALCOHOL POISONING [None]
